FAERS Safety Report 6140138-4 (Version None)
Quarter: 2009Q2

REPORT INFORMATION
  Report Type: 
  Country: None (occurrence: None)
  Receive Date: 20090401
  Receipt Date: 20090320
  Transmission Date: 20091009
  Serious: Yes (Other)
  Sender: FDA-Public Use
  Company Number: GB-PFIZER INC-2009187423

PATIENT

DRUGS (6)
  1. CHAMPIX [Suspect]
     Indication: SMOKING CESSATION THERAPY
     Route: 048
     Dates: start: 20090120, end: 20090224
  2. ASACOL [Concomitant]
  3. FLIXONASE [Concomitant]
  4. SALBUTAMOL [Concomitant]
  5. SERETIDE [Concomitant]
  6. MONTELUKAST SODIUM [Concomitant]

REACTIONS (2)
  - ACTIVITIES OF DAILY LIVING IMPAIRED [None]
  - DEPRESSED MOOD [None]
